FAERS Safety Report 7618391-7 (Version None)
Quarter: 2011Q3

REPORT INFORMATION
  Report Type: 
  Country: None (occurrence: None)
  Receive Date: 20110718
  Receipt Date: 20110708
  Transmission Date: 20111222
  Serious: Yes (Other)
  Sender: FDA-Public Use
  Company Number: PHHY2011GR61593

PATIENT
  Age: 64 Year
  Sex: Female

DRUGS (2)
  1. ONBREZ [Suspect]
     Indication: CHRONIC OBSTRUCTIVE PULMONARY DISEASE
     Dosage: UNK UKN, UNK
  2. B2 STIMULANT [Concomitant]
     Dosage: UNK UKN, UNK

REACTIONS (1)
  - BURNING SENSATION [None]
